FAERS Safety Report 14379951 (Version 5)
Quarter: 2020Q2

REPORT INFORMATION
  Report Type: Spontaneous
  Country: US (occurrence: US)
  Receive Date: 20180112
  Receipt Date: 20200506
  Transmission Date: 20200713
  Serious: No
  Sender: FDA-Public Use
  Company Number: US-PFIZER INC-2018014404

PATIENT
  Age: 68 Year
  Sex: Female
  Weight: 108.86 kg

DRUGS (1)
  1. XELJANZ XR [Suspect]
     Active Substance: TOFACITINIB CITRATE
     Indication: PSORIATIC ARTHROPATHY
     Dosage: 11 MG, ALTERNATE DAY

REACTIONS (7)
  - Blood test abnormal [Unknown]
  - White blood cell count increased [Unknown]
  - Product use issue [Unknown]
  - Off label use [Unknown]
  - Neutrophil count decreased [Unknown]
  - Neutrophil count increased [Unknown]
  - Malaise [Unknown]

NARRATIVE: CASE EVENT DATE: 20200416
